FAERS Safety Report 9010652 (Version 1)
Quarter: 2013Q1

REPORT INFORMATION
  Report Type: Spontaneous
  Country: US (occurrence: US)
  Receive Date: 20130109
  Receipt Date: 20130109
  Transmission Date: 20140127
  Serious: Yes (Death)
  Sender: FDA-Public Use
  Company Number: US-PFIZER INC-2013004510

PATIENT
  Age: 74 Year
  Sex: Female

DRUGS (6)
  1. AMLODIPINE BESILATE [Suspect]
     Dosage: UNK
     Route: 048
  2. FUROSEMIDE [Suspect]
     Dosage: UNK
     Route: 048
  3. METHYLPREDNISOLONE [Suspect]
     Dosage: UNK
     Route: 048
  4. LEVOTHYROXINE SODIUM [Suspect]
     Dosage: UNK
     Route: 048
  5. LAMOTRIGINE [Suspect]
     Dosage: UNK
     Route: 048
  6. ALLOPURINOL [Suspect]
     Dosage: UNK
     Route: 048

REACTIONS (3)
  - Completed suicide [Fatal]
  - Intentional drug misuse [None]
  - Toxicity to various agents [None]
